FAERS Safety Report 5232857-9 (Version None)
Quarter: 2007Q1

REPORT INFORMATION
  Report Type: 
  Country: None (occurrence: None)
  Receive Date: 20070207
  Receipt Date: 20070129
  Transmission Date: 20070707
  Serious: Yes (Hospitalization)
  Sender: FDA-Public Use
  Company Number: US-ABBOTT-06P-163-0347661-00

PATIENT
  Sex: Female
  Weight: 61.29 kg

DRUGS (12)
  1. HUMIRA [Suspect]
     Indication: CROHN'S DISEASE
     Route: 058
     Dates: start: 20060807, end: 20060814
  2. HUMIRA [Suspect]
     Route: 058
     Dates: start: 20060814, end: 20061106
  3. HUMIRA [Suspect]
     Dosage: LOADING DOSE
     Route: 058
     Dates: start: 20070122, end: 20070129
  4. HUMIRA [Suspect]
     Route: 058
     Dates: start: 20070129, end: 20070129
  5. OXYCODONE HCL [Concomitant]
     Indication: PAIN
     Route: 048
  6. POTASSIUM ACETATE [Concomitant]
     Indication: MINERAL SUPPLEMENTATION
     Route: 048
  7. MAGNESIUM OXIDE [Concomitant]
     Indication: MINERAL SUPPLEMENTATION
     Route: 048
  8. CALCIUM [Concomitant]
     Indication: MINERAL SUPPLEMENTATION
     Route: 048
  9. HYDROMORPHONE HCL [Concomitant]
     Indication: PAIN
     Route: 048
  10. FENTANYL [Concomitant]
     Indication: PAIN
     Route: 062
  11. PREDNISONE [Concomitant]
     Indication: INFLAMMATION
     Route: 048
  12. CYANOCOBALAMIN [Concomitant]
     Indication: VITAMIN B12 DEFICIENCY
     Route: 050

REACTIONS (6)
  - ADRENAL INSUFFICIENCY [None]
  - CROHN'S DISEASE [None]
  - DIARRHOEA [None]
  - INJECTION SITE PAIN [None]
  - NASOPHARYNGITIS [None]
  - PYREXIA [None]
